FAERS Safety Report 11117796 (Version 2)
Quarter: 2016Q1

REPORT INFORMATION
  Report Type: Report from Study
  Country: US (occurrence: US)
  Receive Date: 20150518
  Receipt Date: 20160105
  Transmission Date: 20160525
  Serious: Yes (Other)
  Sender: FDA-Public Use
  Company Number: US-UCBSA-2015015492

PATIENT
  Age: 49 Year
  Sex: Female

DRUGS (5)
  1. LACOSAMIDE [Suspect]
     Active Substance: LACOSAMIDE
     Indication: SEIZURE
     Dosage: 100 MG, 2X/DAY (BID)
     Dates: start: 2012
  2. TRILEPTAL [Concomitant]
     Active Substance: OXCARBAZEPINE
     Indication: PRODUCT USED FOR UNKNOWN INDICATION
     Dosage: UNK
  3. LACOSAMIDE [Suspect]
     Active Substance: LACOSAMIDE
     Dosage: 5 TABLETS DAILY (100 MG 2 IN THE MORNING AND 3 IN THE EVENING)
  4. KEPPRA [Suspect]
     Active Substance: LEVETIRACETAM
     Indication: SEIZURE
     Dosage: UNK
     Dates: start: 2011, end: 2011
  5. LACOSAMIDE [Suspect]
     Active Substance: LACOSAMIDE
     Dosage: ELEVATED LACOSAMIDE DOSE LITTLE BY LITTLE

REACTIONS (8)
  - Concussion [Not Recovered/Not Resolved]
  - Off label use [Unknown]
  - Impaired driving ability [Unknown]
  - Seizure [Recovered/Resolved]
  - Generalised tonic-clonic seizure [Not Recovered/Not Resolved]
  - Overdose [Unknown]
  - Adverse drug reaction [Unknown]
  - Personality change [Unknown]

NARRATIVE: CASE EVENT DATE: 2011
